FAERS Safety Report 5000673-9 (Version None)
Quarter: 2006Q2

REPORT INFORMATION
  Report Type: 
  Country: None (occurrence: None)
  Receive Date: 20060512
  Receipt Date: 20060419
  Transmission Date: 20061013
  Serious: Yes (Other)
  Sender: FDA-Public Use
  Company Number: BR-BRISTOL-MYERS SQUIBB COMPANY-13351960

PATIENT

DRUGS (2)
  1. REYATAZ [Suspect]
     Dates: start: 20060116
  2. BIOVIR [Suspect]
     Dates: start: 20060116

REACTIONS (1)
  - PROGRESSIVE MULTIFOCAL LEUKOENCEPHALOPATHY [None]
